FAERS Safety Report 13685270 (Version 2)
Quarter: 2017Q3

REPORT INFORMATION
  Report Type: Spontaneous
  Country: CN (occurrence: CN)
  Receive Date: 20170623
  Receipt Date: 20170710
  Transmission Date: 20171127
  Serious: Yes (Other)
  Sender: FDA-Public Use
  Company Number: CN-GLAXOSMITHKLINE-CN2017GSK095816

PATIENT
  Age: 55 Year
  Sex: Male
  Weight: 72.5 kg

DRUGS (4)
  1. HEPTODIN [Suspect]
     Active Substance: LAMIVUDINE
     Indication: HEPATITIS B
     Dosage: 1 DF, QD
     Route: 048
     Dates: start: 1999
  2. VIREAD [Suspect]
     Active Substance: TENOFOVIR DISOPROXIL FUMARATE
     Indication: HEPATITIS B
     Dosage: UNK
     Route: 048
     Dates: start: 201606, end: 20170620
  3. ENTECAVIR TABLET [Concomitant]
     Indication: HEPATITIS B
     Dosage: 1 UNK, QOD
     Route: 048
     Dates: start: 20170621
  4. HEPSERA [Suspect]
     Active Substance: ADEFOVIR DIPIVOXIL
     Indication: HEPATITIS B
     Dosage: 1 DF, QD
     Route: 048

REACTIONS (6)
  - Renal injury [Recovered/Resolved]
  - Drug ineffective [Unknown]
  - Pathogen resistance [Unknown]
  - Blood creatinine increased [Not Recovered/Not Resolved]
  - Blood urea increased [Not Recovered/Not Resolved]
  - Drug prescribing error [Unknown]
